FAERS Safety Report 20779034 (Version 1)
Quarter: 2022Q2

REPORT INFORMATION
  Report Type: Spontaneous
  Country: US (occurrence: None)
  Receive Date: 20220503
  Receipt Date: 20220503
  Transmission Date: 20220721
  Serious: Yes (Hospitalization)
  Sender: FDA-Public Use
  Company Number: None

PATIENT
  Age: 39 Year
  Sex: Male

DRUGS (1)
  1. SOFOSBUVIR AND VELPATASVIR [Suspect]
     Active Substance: SOFOSBUVIR\VELPATASVIR
     Indication: Hepatitis C
     Dosage: OTHER QUANTITY : 400-100MG DAILY;?FREQUENCY : DAILY;?
     Route: 048
     Dates: start: 202204

REACTIONS (7)
  - Migraine [None]
  - Chest discomfort [None]
  - Blood pressure increased [None]
  - Platelet count increased [None]
  - Tinnitus [None]
  - Palpitations [None]
  - Vision blurred [None]

NARRATIVE: CASE EVENT DATE: 20220425
